FAERS Safety Report 13736385 (Version 3)
Quarter: 2017Q3

REPORT INFORMATION
  Report Type: Spontaneous
  Country: US (occurrence: US)
  Receive Date: 20170710
  Receipt Date: 20170912
  Transmission Date: 20171127
  Serious: Yes (Other)
  Sender: FDA-Public Use
  Company Number: US-009507513-1706USA009535

PATIENT
  Age: 72 Year
  Sex: Female
  Weight: 55 kg

DRUGS (2)
  1. LINZESS [Concomitant]
     Active Substance: LINACLOTIDE
  2. BELSOMRA [Suspect]
     Active Substance: SUVOREXANT
     Indication: INSOMNIA
     Dosage: 10 MG, DAILY PM
     Route: 048
     Dates: start: 20170601, end: 20170603

REACTIONS (5)
  - Vision blurred [Recovering/Resolving]
  - Visual impairment [Unknown]
  - Drug ineffective [Unknown]
  - Eye irritation [Recovering/Resolving]
  - Glaucoma [Unknown]

NARRATIVE: CASE EVENT DATE: 20170601
